FAERS Safety Report 4624547-8 (Version None)
Quarter: 2005Q1

REPORT INFORMATION
  Report Type: 
  Country: None (occurrence: None)
  Receive Date: 20050107
  Receipt Date: 20040908
  Transmission Date: 20050727
  Serious: No
  Sender: FDA-Public Use
  Company Number: 234712K04USA

PATIENT
  Age: 43 Year
  Sex: Female

DRUGS (3)
  1. REBIF [Suspect]
     Indication: MULTIPLE SCLEROSIS
     Dosage: 8.8 MCG, 3 IN 1 WEEKS, 22MCG ONCE
     Dates: start: 20040901, end: 20040901
  2. REBIF [Suspect]
     Indication: MULTIPLE SCLEROSIS
     Dosage: 8.8 MCG, 3 IN 1 WEEKS, 22MCG ONCE
     Dates: start: 20040902
  3. . [Concomitant]

REACTIONS (15)
  - ASTHENIA [None]
  - BONE PAIN [None]
  - COORDINATION ABNORMAL [None]
  - DRUG ABUSER [None]
  - DRUG ADMINISTRATION ERROR [None]
  - FATIGUE [None]
  - HYPERTONIA [None]
  - INJECTION SITE ERYTHEMA [None]
  - MUSCLE RIGIDITY [None]
  - MUSCULOSKELETAL STIFFNESS [None]
  - MYALGIA [None]
  - PAIN IN EXTREMITY [None]
  - PARAESTHESIA [None]
  - RASH ERYTHEMATOUS [None]
  - SHOULDER PAIN [None]
